FAERS Safety Report 5426488-5 (Version None)
Quarter: 2007Q3

REPORT INFORMATION
  Report Type: 
  Country: None (occurrence: None)
  Receive Date: 20070827
  Receipt Date: 20070820
  Transmission Date: 20080115
  Serious: Yes (Death, Hospitalization)
  Sender: FDA-Public Use
  Company Number: NL-JNJFOC-20070802307

PATIENT
  Sex: Male

DRUGS (12)
  1. BLINDED; INFLIXIMAB, RECOMBINANT [Suspect]
     Route: 042
  2. BLINDED; INFLIXIMAB, RECOMBINANT [Suspect]
     Indication: IDIOPATHIC PULMONARY FIBROSIS
     Route: 042
  3. PLACEBO [Suspect]
     Route: 042
  4. PLACEBO [Suspect]
     Indication: IDIOPATHIC PULMONARY FIBROSIS
     Route: 042
  5. AZATHIOPINE [Concomitant]
     Route: 048
  6. FLUIMUCIL [Concomitant]
     Route: 048
  7. PANTOPRAZOLE SODIUM [Concomitant]
     Route: 048
  8. DIDRONEL [Concomitant]
     Route: 048
  9. ATENOLOL [Concomitant]
     Route: 048
  10. PARACETAMOL [Concomitant]
     Route: 048
  11. PREDNISON [Concomitant]
     Route: 048
  12. PREDNISON [Concomitant]
     Route: 048

REACTIONS (4)
  - DYSPNOEA [None]
  - IDIOPATHIC PULMONARY FIBROSIS [None]
  - LUNG INFECTION [None]
  - PNEUMONIA [None]
